FAERS Safety Report 17794548 (Version 1)
Quarter: 2020Q2

REPORT INFORMATION
  Report Type: Spontaneous
  Country: DK (occurrence: DK)
  Receive Date: 20200515
  Receipt Date: 20200515
  Transmission Date: 20200714
  Serious: Yes (Other)
  Sender: FDA-Public Use
  Company Number: DK-ELI_LILLY_AND_COMPANY-DK202005001212

PATIENT
  Age: 28 Year
  Sex: Male

DRUGS (14)
  1. RISPERIDONE. [Suspect]
     Active Substance: RISPERIDONE
     Indication: SCHIZOPHRENIA
     Dosage: UNK, PRN
     Route: 065
     Dates: end: 20181205
  2. CISORDINOL ACUTARD [Suspect]
     Active Substance: ZUCLOPENTHIXOL ACETATE
     Indication: SCHIZOPHRENIA
     Dosage: UNK UNK, UNKNOWN
     Route: 065
  3. NOZINAN EMBON. [Concomitant]
     Indication: SCHIZOPHRENIA
     Dosage: STYRKE: 50 MG. DOSIS: 50 MG EFTER BEHOV, MAX 3XDGL.
  4. ZOLPIDEM [Concomitant]
     Active Substance: ZOLPIDEM TARTRATE
     Indication: PRODUCT USED FOR UNKNOWN INDICATION
     Dosage: STYRKE: UKENDT.
  5. FLUANXOL LP [Concomitant]
     Active Substance: FLUPENTIXOL DECANOATE
     Indication: SCHIZOPHRENIA
     Dosage: STYRKE: 5 MG.
     Dates: end: 2018
  6. ZYPREXA [Suspect]
     Active Substance: OLANZAPINE
     Indication: SCHIZOPHRENIA
     Dosage: UNK UNK, UNKNOWN
     Route: 065
  7. CIPRALEX [Concomitant]
     Active Substance: ESCITALOPRAM OXALATE
     Indication: PRODUCT USED FOR UNKNOWN INDICATION
     Dosage: STYRKE: 10 MG. DOSIS: UKENDT.
  8. DIAZEPAM. [Concomitant]
     Active Substance: DIAZEPAM
     Indication: PRODUCT USED FOR UNKNOWN INDICATION
     Dosage: STYRKE: UKENDT. DOSIS: UKENDT.
     Dates: end: 20181205
  9. SEROQUEL [Suspect]
     Active Substance: QUETIAPINE FUMARATE
     Indication: SCHIZOPHRENIA
     Dosage: UNK, UNKNOWN
     Route: 065
  10. RIVOTRIL [Concomitant]
     Active Substance: CLONAZEPAM
     Indication: PRODUCT USED FOR UNKNOWN INDICATION
     Dosage: STYRKE: UKENDT. DOSIS: VARIERENDE.
  11. INVEGA [Concomitant]
     Active Substance: PALIPERIDONE
     Indication: SCHIZOPHRENIA
     Dosage: STYRKE: 6 MG. DOSIS: UKENDT.
     Route: 048
  12. TRILAFON AMEL [Concomitant]
     Indication: SCHIZOPHRENIA
     Dosage: STYRKE: UKENDT. DOSIS: UKENDT.
  13. ZELDOX [Concomitant]
     Active Substance: ZIPRASIDONE
     Indication: SCHIZOPHRENIA
     Dosage: STYRKE: UKENDT. DOSIS: 40 + 0 + 80 MG.
  14. STILNOCT [Concomitant]
     Active Substance: ZOLPIDEM TARTRATE
     Indication: PRODUCT USED FOR UNKNOWN INDICATION
     Dosage: STYRKE: 10 MG. DOSIS: UKENDT.
     Route: 048

REACTIONS (22)
  - Stress [Unknown]
  - Anxiety [Unknown]
  - Acrophobia [Unknown]
  - Anger [Unknown]
  - Nightmare [Unknown]
  - Persistent depressive disorder [Unknown]
  - Malaise [Unknown]
  - Sexual dysfunction [Unknown]
  - Hunger [Unknown]
  - Head discomfort [Unknown]
  - Alcohol intolerance [Unknown]
  - Fatigue [Unknown]
  - Drug dependence [Unknown]
  - Mental disorder [Unknown]
  - Somnolence [Unknown]
  - Paralysis [Unknown]
  - Nausea [Unknown]
  - Vomiting [Unknown]
  - Hallucination, auditory [Unknown]
  - Inferiority complex [Unknown]
  - Delusion [Unknown]
  - Akathisia [Unknown]

NARRATIVE: CASE EVENT DATE: 2009
